FAERS Safety Report 13634462 (Version 8)
Quarter: 2018Q2

REPORT INFORMATION
  Report Type: Report from Study
  Country: RU (occurrence: RU)
  Receive Date: 20170609
  Receipt Date: 20180612
  Transmission Date: 20180711
  Serious: Yes (Hospitalization)
  Sender: FDA-Public Use
  Company Number: RU-ROCHE-1944616

PATIENT
  Age: 60 Year
  Sex: Female
  Weight: 67 kg

DRUGS (5)
  1. MAGNESIUM ASPARTATE/POTASSIUM ASPARTATE [Concomitant]
     Indication: PROPHYLAXIS
     Dosage: 10 ML (MILLILITER; CM3)
     Route: 042
     Dates: start: 20170605, end: 20170615
  2. OMEPRAZOLE. [Concomitant]
     Active Substance: OMEPRAZOLE
     Indication: PROPHYLAXIS
     Route: 042
     Dates: start: 20170605
  3. VEMURAFENIB. [Suspect]
     Active Substance: VEMURAFENIB
     Indication: MALIGNANT MELANOMA
     Dosage: DATE OF MOST RECENT DOSE PRIOR TO SAE ONSET (4 TABLETS): 31/MAY/2017?DATE OF MOST RECENT DOSE PRIOR
     Route: 048
     Dates: start: 20170522
  4. COBIMETINIB. [Suspect]
     Active Substance: COBIMETINIB
     Indication: MALIGNANT MELANOMA
     Dosage: DATE OF MOST RECENT DOSE PRIOR TO FIRST OCCURRANCE OF RASH: 31/MAY/2017 (60 MG)?DATE OF MOST RECENT
     Route: 048
     Dates: start: 20170522
  5. CALCIUM GLUCONATE. [Concomitant]
     Active Substance: CALCIUM GLUCONATE
     Indication: PROPHYLAXIS
     Route: 048
     Dates: start: 20170605

REACTIONS (3)
  - Rash [Recovered/Resolved]
  - Stevens-Johnson syndrome [Recovered/Resolved]
  - Rash [Recovered/Resolved]

NARRATIVE: CASE EVENT DATE: 20170531
